FAERS Safety Report 8924183 (Version 1)
Quarter: 2012Q4

REPORT INFORMATION
  Report Type: 
  Country: GB (occurrence: GB)
  Receive Date: 20121126
  Receipt Date: 20121126
  Transmission Date: 20130627
  Serious: Yes (Other)
  Sender: FDA-Public Use
  Company Number: GB-TEVA-371105ISR

PATIENT
  Age: 69 Year
  Sex: Male

DRUGS (3)
  1. WARFARIN [Suspect]
     Dosage: Dose adjusted
  2. LIDOCAINE HYDROCHLORIDE [Interacting]
     Indication: ULCER
  3. BONJELA [Suspect]

REACTIONS (2)
  - International normalised ratio increased [Recovered/Resolved]
  - Drug interaction [Recovered/Resolved]
